FAERS Safety Report 13205544 (Version 3)
Quarter: 2017Q1

REPORT INFORMATION
  Report Type: Spontaneous
  Country: US (occurrence: US)
  Receive Date: 20170209
  Receipt Date: 20170215
  Transmission Date: 20170428
  Serious: No
  Sender: FDA-Public Use
  Company Number: US-TEVA-735587ACC

PATIENT
  Sex: Male

DRUGS (1)
  1. PROAIR HFA [Suspect]
     Active Substance: ALBUTEROL SULFATE
     Indication: BRONCHITIS
     Dates: start: 20161121, end: 20161122

REACTIONS (4)
  - Faeces discoloured [Unknown]
  - Tooth discolouration [Unknown]
  - Tongue discolouration [Unknown]
  - Cough [Unknown]

NARRATIVE: CASE EVENT DATE: 201611
